FAERS Safety Report 6841253-X (Version None)
Quarter: 2010Q3

REPORT INFORMATION
  Report Type: 
  Country: None (occurrence: None)
  Receive Date: 20100714
  Receipt Date: 20070627
  Transmission Date: 20110219
  Serious: No
  Sender: FDA-Public Use
  Company Number: US-PFIZER INC-2007054165

PATIENT
  Sex: Female
  Weight: 79.5 kg

DRUGS (6)
  1. CHANTIX [Suspect]
     Indication: SMOKING CESSATION THERAPY
     Dates: start: 20070601
  2. ZOLOFT [Concomitant]
  3. WELLBUTRIN [Concomitant]
  4. TRAZODONE HYDROCHLORIDE [Concomitant]
  5. XANAX [Concomitant]
  6. CRESTOR [Concomitant]

REACTIONS (5)
  - COUGH [None]
  - DIARRHOEA [None]
  - DRY MOUTH [None]
  - FLATULENCE [None]
  - NAUSEA [None]
